FAERS Safety Report 5871360-X (Version None)
Quarter: 2008Q3

REPORT INFORMATION
  Report Type: 
  Country: None (occurrence: None)
  Receive Date: 20080904
  Receipt Date: 20080904
  Transmission Date: 20090109
  Serious: No
  Sender: FDA-Public Use
  Company Number: None

PATIENT
  Age: 32 Year
  Sex: Female

DRUGS (1)
  1. FLUCONAZOLE [Suspect]
     Dosage: 400MG

REACTIONS (4)
  - DIZZINESS [None]
  - DYSPNOEA [None]
  - FATIGUE [None]
  - PALPITATIONS [None]
